FAERS Safety Report 24890929 (Version 1)
Quarter: 2025Q1

REPORT INFORMATION
  Report Type: Spontaneous
  Country: DK (occurrence: DK)
  Receive Date: 20250127
  Receipt Date: 20250127
  Transmission Date: 20250409
  Serious: Yes (Life-Threatening, Hospitalization)
  Sender: TEVA
  Company Number: None

PATIENT
  Age: 63 Year
  Sex: Female
  Weight: 94 kg

DRUGS (2)
  1. AMLODIPINE [Suspect]
     Active Substance: AMLODIPINE BESYLATE
     Indication: Hypertension
     Dosage: AMLODIPINE TEVA, LOT6920324
     Route: 048
     Dates: start: 20240914, end: 20241223
  2. ENALAPRIL MALEATE\HYDROCHLOROTHIAZIDE [Concomitant]
     Active Substance: ENALAPRIL MALEATE\HYDROCHLOROTHIAZIDE
     Indication: Hypertension
     Dosage: DOSAGE: 2 TABLETS (STRENGTH: 20/12.5 MG) A DAY
     Route: 048
     Dates: start: 20230925

REACTIONS (1)
  - Blood potassium decreased [Recovered/Resolved]

NARRATIVE: CASE EVENT DATE: 20241001
